FAERS Safety Report 14215338 (Version 2)
Quarter: 2017Q4

REPORT INFORMATION
  Report Type: Spontaneous
  Country: JP (occurrence: JP)
  Receive Date: 20171122
  Receipt Date: 20171221
  Transmission Date: 20180321
  Serious: Yes (Hospitalization)
  Sender: FDA-Public Use
  Company Number: JP-ELI_LILLY_AND_COMPANY-JP201711006774

PATIENT
  Age: 66 Year
  Sex: Male
  Weight: 80 kg

DRUGS (41)
  1. LIXIANA [Suspect]
     Active Substance: EDOXABAN TOSYLATE
     Dosage: 30 MG, DAILY
     Route: 048
     Dates: start: 20170228, end: 20170228
  2. SERMION                            /00396401/ [Concomitant]
     Active Substance: NICERGOLINE
     Dosage: 1G/DAY
     Route: 048
     Dates: end: 20151224
  3. DIGOXIN. [Concomitant]
     Active Substance: DIGOXIN
     Dosage: 0.125MG/DAY
     Route: 048
  4. NEXIUM [Concomitant]
     Active Substance: ESOMEPRAZOLE MAGNESIUM
     Dosage: 20MG/DAY
     Route: 048
     Dates: start: 20151224, end: 20160610
  5. ZYLORIC [Concomitant]
     Active Substance: ALLOPURINOL
     Dosage: 100MG/DAY
     Route: 048
  6. FLAGYL [Concomitant]
     Active Substance: METRONIDAZOLE\METRONIDAZOLE HYDROCHLORIDE
     Dosage: 500MG/DAY
     Route: 048
     Dates: start: 20160815, end: 20160821
  7. GASTER [Concomitant]
     Active Substance: FAMOTIDINE
     Dosage: 20MG/DAY
     Route: 048
     Dates: start: 20160618, end: 20170814
  8. GASTER [Concomitant]
     Active Substance: FAMOTIDINE
     Dosage: 20MG/DAY
     Route: 048
     Dates: start: 20160822, end: 20161016
  9. ITOROL [Concomitant]
     Active Substance: ISOSORBIDE MONONITRATE
     Dosage: 40MG/DAY
     Route: 048
     Dates: end: 20151224
  10. METGLUCO [Concomitant]
     Active Substance: METFORMIN HYDROCHLORIDE
     Dosage: 500MG/DAY
     Route: 048
     Dates: start: 20151126, end: 20160128
  11. METGLUCO [Concomitant]
     Active Substance: METFORMIN HYDROCHLORIDE
     Dosage: 750MG/DAY
     Route: 048
     Dates: start: 20160129
  12. FRANDOL [Concomitant]
     Active Substance: ISOSORBIDE DINITRATE
     Dosage: 40MG/DAY
     Route: 050
     Dates: start: 20151225, end: 20170216
  13. LIXIANA [Suspect]
     Active Substance: EDOXABAN TOSYLATE
     Indication: ATRIAL FIBRILLATION
     Dosage: 30 MG, DAILY
     Route: 048
     Dates: start: 20151026, end: 20151223
  14. LIXIANA [Suspect]
     Active Substance: EDOXABAN TOSYLATE
     Dosage: 60 MG, DAILY
     Route: 048
     Dates: start: 20170301, end: 20170828
  15. FUROSEMIDE. [Concomitant]
     Active Substance: FUROSEMIDE
     Dosage: 40MG/DAY
     Route: 048
  16. MICARDIS [Concomitant]
     Active Substance: TELMISARTAN
     Dosage: 20MG/DAY
     Route: 048
     Dates: start: 20160901
  17. AMOLIN                             /00249602/ [Concomitant]
     Active Substance: AMOXICILLIN
     Dosage: 1500MG/DAY
     Route: 048
     Dates: start: 20160611, end: 20160617
  18. CLARITH [Concomitant]
     Active Substance: CLARITHROMYCIN
     Dosage: 800MG/DAY
     Route: 048
     Dates: start: 20160611, end: 20160617
  19. ATORVASTATIN                       /01326102/ [Concomitant]
     Active Substance: ATORVASTATIN
     Dosage: 5MG/DAY
     Route: 048
     Dates: start: 20160902, end: 20161221
  20. LIXIANA [Suspect]
     Active Substance: EDOXABAN TOSYLATE
     Dosage: 30 MG, DAILY
     Route: 048
     Dates: start: 20170228
  21. GLACTIV [Concomitant]
     Active Substance: SITAGLIPTIN
     Dosage: 50MG/DAY
     Route: 048
     Dates: end: 20160707
  22. PRASUGREL HYDROCHLORIDE [Suspect]
     Active Substance: PRASUGREL HYDROCHLORIDE
     Dosage: 3.75 MG, DAILY
     Route: 048
     Dates: start: 20170228, end: 20170413
  23. LIXIANA [Suspect]
     Active Substance: EDOXABAN TOSYLATE
     Dosage: 60 MG, DAILY
     Route: 048
     Dates: start: 20151224, end: 20170226
  24. JANUVIA [Concomitant]
     Active Substance: SITAGLIPTIN PHOSPHATE
     Dosage: 50MG/DAY
     Route: 048
     Dates: start: 20151126
  25. GASTER [Concomitant]
     Active Substance: FAMOTIDINE
     Dosage: 1G/DAY
     Route: 048
     Dates: end: 20151223
  26. PANTOSIN [Concomitant]
     Active Substance: PANTETHINE
     Dosage: 1G/DAY
     Route: 048
  27. TAKECAB [Concomitant]
     Active Substance: VONOPRAZAN FUMURATE
     Dosage: 40MG/DAY
     Route: 048
     Dates: start: 20160611, end: 20160617
  28. PRAVASTATIN NA [Concomitant]
     Active Substance: PRAVASTATIN SODIUM
     Dosage: 10MG/DAY
     Route: 048
     Dates: end: 20160901
  29. ATORVASTATIN                       /01326102/ [Concomitant]
     Active Substance: ATORVASTATIN
     Dosage: 10MG/DAY
     Route: 048
     Dates: start: 20161222
  30. PRASUGREL HYDROCHLORIDE [Suspect]
     Active Substance: PRASUGREL HYDROCHLORIDE
     Indication: PRODUCT USED FOR UNKNOWN INDICATION
     Dosage: 3.75 MG, DAILY
     Route: 048
     Dates: start: 20160517, end: 20170226
  31. BAYASPIRIN [Suspect]
     Active Substance: ASPIRIN
     Indication: PRODUCT USED FOR UNKNOWN INDICATION
     Dosage: 100 MG, DAILY
     Route: 048
     Dates: start: 20160517, end: 20170226
  32. CILOSTAZOL. [Concomitant]
     Active Substance: CILOSTAZOL
     Dosage: 100MG/DAY
     Route: 048
     Dates: end: 20160516
  33. MEVALOTIN [Concomitant]
     Active Substance: PRAVASTATIN SODIUM
     Dosage: 1G/DAY
     Route: 048
  34. AMLODIPINE                         /00972402/ [Concomitant]
     Active Substance: AMLODIPINE BESYLATE
     Dosage: 5MG/DAY
     Route: 048
     Dates: start: 20170720
  35. TAKECAB [Concomitant]
     Active Substance: VONOPRAZAN FUMURATE
     Dosage: 10MG/DAY
     Route: 048
     Dates: start: 20161017
  36. PARIET [Concomitant]
     Active Substance: RABEPRAZOLE SODIUM
     Dosage: 20MG/DAY
     Route: 048
     Dates: start: 20160815, end: 20160821
  37. LIXIANA [Suspect]
     Active Substance: EDOXABAN TOSYLATE
     Dosage: 60 MG, DAILY
     Route: 048
     Dates: start: 20170830
  38. LIXIANA [Suspect]
     Active Substance: EDOXABAN TOSYLATE
     Dosage: 60 MG, DAILY
     Route: 048
     Dates: start: 20170301
  39. EUGLUCON [Concomitant]
     Active Substance: GLYBURIDE
     Dosage: 1.25MG/DAY
     Route: 048
     Dates: end: 20151125
  40. NICERGOLINE [Concomitant]
     Active Substance: NICERGOLINE
     Dosage: 15MG/DAY
     Route: 048
     Dates: start: 20151225, end: 20160707
  41. SAWACILLIN [Concomitant]
     Active Substance: AMOXICILLIN
     Dosage: 1500MG/DAY
     Route: 048
     Dates: start: 20160815, end: 20160821

REACTIONS (3)
  - Gastrointestinal tract adenoma [Recovered/Resolved]
  - Helicobacter infection [Recovered/Resolved]
  - Eyelid bleeding [Recovered/Resolved]

NARRATIVE: CASE EVENT DATE: 20160610
